FAERS Safety Report 18351207 (Version 2)
Quarter: 2020Q4

REPORT INFORMATION
  Report Type: Report from Study
  Country: None (occurrence: US)
  Receive Date: 20201007
  Receipt Date: 20201029
  Transmission Date: 20210114
  Serious: Yes (Other)
  Sender: FDA-Public Use
  Company Number: US-ABBVIE-20K-163-3469401-00

PATIENT
  Sex: Female

DRUGS (2)
  1. HUMIRA [Suspect]
     Active Substance: ADALIMUMAB
     Indication: CROHN^S DISEASE
  2. HUMIRA [Suspect]
     Active Substance: ADALIMUMAB
     Indication: COLITIS ULCERATIVE
     Route: 058
     Dates: start: 20200327

REACTIONS (12)
  - Decreased appetite [Not Recovered/Not Resolved]
  - Abnormal faeces [Not Recovered/Not Resolved]
  - Psoriasis [Not Recovered/Not Resolved]
  - Colitis ulcerative [Unknown]
  - Large intestine polyp [Unknown]
  - Depression [Unknown]
  - Anxiety [Unknown]
  - Muscle spasms [Recovering/Resolving]
  - Food intolerance [Unknown]
  - Loss of personal independence in daily activities [Unknown]
  - Mucous stools [Recovering/Resolving]
  - Insomnia [Unknown]

NARRATIVE: CASE EVENT DATE: 2020
